FAERS Safety Report 8608804 (Version 4)
Quarter: 2013Q4

REPORT INFORMATION
  Report Type: Spontaneous
  Country: US (occurrence: US)
  Receive Date: 20120611
  Receipt Date: 20131122
  Transmission Date: 20140711
  Serious: Yes (Hospitalization)
  Sender: FDA-Public Use
  Company Number: US-ASTRAZENECA-2010SE47465

PATIENT
  Age: 73 Year
  Sex: Female
  Weight: 83.9 kg

DRUGS (6)
  1. NEXIUM [Suspect]
     Indication: GASTROOESOPHAGEAL REFLUX DISEASE
     Route: 048
     Dates: start: 2007, end: 20131113
  2. NEXIUM [Suspect]
     Indication: EROSIVE OESOPHAGITIS
     Route: 048
     Dates: start: 2007, end: 20131113
  3. PRILOSEC [Suspect]
     Indication: GASTROOESOPHAGEAL REFLUX DISEASE
     Dosage: DAILY FREQUENCY
     Route: 048
     Dates: start: 2007, end: 2007
  4. PRILOSEC [Suspect]
     Indication: EROSIVE OESOPHAGITIS
     Dosage: DAILY FREQUENCY
     Route: 048
     Dates: start: 2007, end: 2007
  5. METOPROLOL [Suspect]
     Indication: BLOOD PRESSURE ABNORMAL
     Route: 048
  6. DIOVAN [Concomitant]
     Indication: BLOOD PRESSURE
     Route: 048
     Dates: start: 2008

REACTIONS (13)
  - Palpitations [Unknown]
  - Drug hypersensitivity [Unknown]
  - Oesophagitis [Unknown]
  - Hernia [Unknown]
  - Dyspepsia [Unknown]
  - Gastrooesophageal reflux disease [Recovered/Resolved]
  - Pain [Unknown]
  - Sleep disorder due to general medical condition, insomnia type [Unknown]
  - Abdominal pain upper [Unknown]
  - Drug dose omission [Unknown]
  - Meniscus injury [Recovered/Resolved]
  - Drug ineffective [Unknown]
  - Body height decreased [Not Recovered/Not Resolved]
